FAERS Safety Report 12862774 (Version 2)
Quarter: 2016Q4

REPORT INFORMATION
  Report Type: Spontaneous
  Country: US (occurrence: US)
  Receive Date: 20161019
  Receipt Date: 20161019
  Transmission Date: 20170207
  Serious: No
  Sender: FDA-Public Use
  Company Number: US-ASTELLAS-2016US025321

PATIENT
  Sex: Male

DRUGS (4)
  1. MYCAMINE [Suspect]
     Active Substance: MICAFUNGIN SODIUM
     Indication: SEPSIS
     Route: 042
     Dates: start: 20160211, end: 20160212
  2. MYCAMINE [Suspect]
     Active Substance: MICAFUNGIN SODIUM
     Indication: SEPSIS
     Route: 042
     Dates: start: 20160211, end: 20160212
  3. MYCAMINE [Suspect]
     Active Substance: MICAFUNGIN SODIUM
     Indication: STAPHYLOCOCCAL SEPSIS
  4. MYCAMINE [Suspect]
     Active Substance: MICAFUNGIN SODIUM
     Indication: STAPHYLOCOCCAL SEPSIS

REACTIONS (1)
  - Off label use [Unknown]
